FAERS Safety Report 7530581-0 (Version None)
Quarter: 2011Q2

REPORT INFORMATION
  Report Type: 
  Country: None (occurrence: None)
  Receive Date: 20110607
  Receipt Date: 20110530
  Transmission Date: 20111010
  Serious: Yes (Hospitalization)
  Sender: FDA-Public Use
  Company Number: CO-SANOFI-AVENTIS-2011SA032651

PATIENT
  Sex: Male

DRUGS (2)
  1. INSULIN GLARGINE [Concomitant]
     Indication: DIABETES MELLITUS
     Route: 058
     Dates: start: 20080101
  2. APIDRA [Suspect]
     Dosage: ADMINISTERED AT EACH MEAL
     Route: 058
     Dates: start: 20080101

REACTIONS (2)
  - KETOACIDOSIS [None]
  - HYPERGLYCAEMIA [None]
